FAERS Safety Report 21557754 (Version 1)
Quarter: 2022Q4

REPORT INFORMATION
  Report Type: Spontaneous
  Country: US (occurrence: US)
  Receive Date: 20221106
  Receipt Date: 20221106
  Transmission Date: 20230113
  Serious: Yes (Other)
  Sender: FDA-Public Use
  Company Number: US-BRISTOL-MYERS SQUIBB COMPANY-2022-130614

PATIENT
  Age: 61 Year
  Sex: Male
  Weight: 95.62 kg

DRUGS (1)
  1. REVLIMID [Suspect]
     Active Substance: LENALIDOMIDE
     Indication: Product used for unknown indication
     Dosage: DAILY ON DAYS 1-21 EVERY 28 DAYS
     Route: 048
     Dates: start: 20220504

REACTIONS (3)
  - Dizziness [Recovering/Resolving]
  - Syncope [Recovering/Resolving]
  - Blood viscosity increased [Recovering/Resolving]

NARRATIVE: CASE EVENT DATE: 20221031
